FAERS Safety Report 14832485 (Version 1)
Quarter: 2018Q2

REPORT INFORMATION
  Report Type: Spontaneous
  Country: CN (occurrence: CN)
  Receive Date: 20180501
  Receipt Date: 20180501
  Transmission Date: 20180711
  Serious: Yes (Other)
  Sender: FDA-Public Use
  Company Number: CN-BAYER-2018-082307

PATIENT
  Age: 75 Year
  Sex: Male
  Weight: 65 kg

DRUGS (2)
  1. ULTRAVIST [Suspect]
     Active Substance: IOPROMIDE
     Indication: COMPUTERISED TOMOGRAM
  2. ULTRAVIST [Suspect]
     Active Substance: IOPROMIDE
     Indication: PROSTATE CANCER
     Dosage: 80 ML, QD
     Route: 042
     Dates: start: 20180313, end: 20180313

REACTIONS (5)
  - Rash [Recovering/Resolving]
  - Musculoskeletal discomfort [Recovering/Resolving]
  - Lip swelling [Recovering/Resolving]
  - Hypoaesthesia oral [Recovering/Resolving]
  - Facial pain [Recovering/Resolving]

NARRATIVE: CASE EVENT DATE: 20180313
